FAERS Safety Report 10160458 (Version 1)
Quarter: 2014Q2

REPORT INFORMATION
  Report Type: Spontaneous
  Country: GB (occurrence: GB)
  Receive Date: 20140508
  Receipt Date: 20140508
  Transmission Date: 20141212
  Serious: Yes (Hospitalization)
  Sender: FDA-Public Use
  Company Number: GB-UCBSA-120452

PATIENT
  Age: 4 Year
  Sex: Male

DRUGS (9)
  1. LEVETIRACETAM [Suspect]
     Route: 048
  2. BACLOFEN [Suspect]
     Route: 048
  3. BUMETANIDE [Suspect]
     Route: 048
  4. CAPTOPRIL [Suspect]
     Route: 048
  5. DIAZEPAM [Suspect]
     Route: 048
  6. METOPROLOL [Suspect]
     Route: 048
  7. PHENYTOIN [Suspect]
     Route: 048
  8. SODIUM VALPROATE [Suspect]
     Route: 048
  9. SPIRONOLACTONE [Suspect]
     Route: 048

REACTIONS (1)
  - Blood ketone body increased [Unknown]
